FAERS Safety Report 6541009-1 (Version None)
Quarter: 2010Q1

REPORT INFORMATION
  Report Type: 
  Country: None (occurrence: None)
  Receive Date: 20100118
  Receipt Date: 20091228
  Transmission Date: 20100710
  Serious: Yes (Hospitalization)
  Sender: FDA-Public Use
  Company Number: AU-NOVOPROD-300092

PATIENT

DRUGS (3)
  1. NOVOMIX 30 [Suspect]
     Indication: TYPE 2 DIABETES MELLITUS
     Dosage: 85 U, QD
     Route: 058
     Dates: start: 20080401
  2. METFORMIN HCL [Concomitant]
  3. LANTUS [Concomitant]
     Indication: TYPE 2 DIABETES MELLITUS

REACTIONS (1)
  - CORONARY ARTERY DISEASE [None]
